FAERS Safety Report 6431960-5 (Version None)
Quarter: 2009Q4

REPORT INFORMATION
  Report Type: 
  Country: None (occurrence: None)
  Receive Date: 20091109
  Receipt Date: 20091029
  Transmission Date: 20100525
  Serious: Yes (Other)
  Sender: FDA-Public Use
  Company Number: IT-JNJFOC-20091100827

PATIENT
  Age: 64 Year
  Sex: Male

DRUGS (1)
  1. CAELYX [Suspect]
     Indication: KAPOSI'S SARCOMA
     Dosage: 12 CYCLES
     Route: 042

REACTIONS (2)
  - PALMAR-PLANTAR ERYTHRODYSAESTHESIA SYNDROME [None]
  - PENILE ULCERATION [None]
